FAERS Safety Report 5131399-9 (Version None)
Quarter: 2006Q4

REPORT INFORMATION
  Report Type: 
  Country: None (occurrence: None)
  Receive Date: 20061020
  Receipt Date: 20061017
  Transmission Date: 20070319
  Serious: Yes (Hospitalization)
  Sender: FDA-Public Use
  Company Number: S2006US18187

PATIENT
  Age: 57 Year
  Sex: Male

DRUGS (2)
  1. COREG [Suspect]
     Indication: DRUG USE FOR UNKNOWN INDICATION
     Dosage: 1.5TAB TWICE PER DAY
     Route: 048
  2. ENALAPRIL MALEATE [Suspect]
     Indication: DRUG USE FOR UNKNOWN INDICATION
     Dosage: 1TAB TWICE PER DAY
     Route: 048

REACTIONS (3)
  - BURNS THIRD DEGREE [None]
  - CARDIAC DISORDER [None]
  - THROMBOSIS [None]
